FAERS Safety Report 23601260 (Version 1)
Quarter: 2024Q1

REPORT INFORMATION
  Report Type: Report from Study
  Country: US (occurrence: US)
  Receive Date: 20240306
  Receipt Date: 20240306
  Transmission Date: 20240410
  Serious: No
  Sender: FDA-Public Use
  Company Number: US-BIOVITRUM-2024-US-003656

PATIENT
  Age: 6 Year
  Sex: Male

DRUGS (2)
  1. KINERET [Suspect]
     Active Substance: ANAKINRA
     Indication: Pyrexia
     Dosage: 90 MG, DAILY
     Dates: start: 20200613
  2. KINERET [Suspect]
     Active Substance: ANAKINRA
     Dosage: DAILY

REACTIONS (2)
  - White blood cell count decreased [Unknown]
  - Intentional product misuse [Not Recovered/Not Resolved]

NARRATIVE: CASE EVENT DATE: 20200613
